FAERS Safety Report 24922964 (Version 8)
Quarter: 2025Q2

REPORT INFORMATION
  Report Type: Report from Study
  Country: US (occurrence: US)
  Receive Date: 20250204
  Receipt Date: 20250506
  Transmission Date: 20250716
  Serious: Yes (Other)
  Sender: PFIZER
  Company Number: US-PFIZER INC-202500023522

PATIENT
  Age: 65 Year
  Sex: Female

DRUGS (3)
  1. TUKYSA [Suspect]
     Active Substance: TUCATINIB
     Dosage: 50 MG, 2X/DAY
     Route: 048
     Dates: start: 20250131
  2. TUKYSA [Suspect]
     Active Substance: TUCATINIB
     Dosage: 50MG TWICE DAILY
     Route: 048
  3. TUKYSA [Suspect]
     Active Substance: TUCATINIB

REACTIONS (12)
  - Feeling abnormal [Unknown]
  - Diarrhoea [Unknown]
  - Eating disorder [Unknown]
  - Nausea [Unknown]
  - Blister [Unknown]
  - Insomnia [Unknown]
  - Abdominal pain upper [Unknown]
  - Heart rate increased [Unknown]
  - Gastrointestinal pain [Unknown]
  - Intentional product misuse [Unknown]
  - Off label use [Unknown]
  - Off label use [Unknown]

NARRATIVE: CASE EVENT DATE: 20250101
